FAERS Safety Report 12371936 (Version 2)
Quarter: 2016Q2

REPORT INFORMATION
  Report Type: Spontaneous
  Country: PL (occurrence: PL)
  Receive Date: 20160516
  Receipt Date: 20160517
  Transmission Date: 20160815
  Serious: Yes (Death, Other)
  Sender: FDA-Public Use
  Company Number: PL-SA-2016SA045874

PATIENT
  Age: 75 Year
  Sex: Male

DRUGS (9)
  1. OXALIPLATIN. [Suspect]
     Active Substance: OXALIPLATIN
     Indication: HEPATOCELLULAR CARCINOMA
     Dosage: PATIENT RECEIVED 4 COURSES OF CHEMOTHERAPY
     Route: 065
  2. RAMIPRIL. [Concomitant]
     Active Substance: RAMIPRIL
     Indication: CARDIAC FAILURE
  3. SPIRONOLACTONE. [Concomitant]
     Active Substance: SPIRONOLACTONE
     Indication: HEPATIC FAILURE
  4. FUROSEMIDE. [Concomitant]
     Active Substance: FUROSEMIDE
     Indication: CARDIAC FAILURE
  5. CARVEDILOL. [Concomitant]
     Active Substance: CARVEDILOL
     Indication: CARDIAC FAILURE
  6. LEUCOVORIN. [Suspect]
     Active Substance: LEUCOVORIN
     Indication: HEPATOCELLULAR CARCINOMA
     Dosage: PATIENT RECEIVED 4 COURSES OF CHEMOTHERAPY
     Route: 065
  7. AMOXICILLIN/CLAVULANIC ACID [Concomitant]
  8. ENOXAPARIN [Concomitant]
     Active Substance: ENOXAPARIN
  9. FLUOROURACIL. [Suspect]
     Active Substance: FLUOROURACIL
     Indication: HEPATOCELLULAR CARCINOMA
     Dosage: PATIENT RECEIVED 4 COURSES OF CHEMOTHERAPY
     Route: 065

REACTIONS (7)
  - Cachexia [Fatal]
  - Disease progression [Not Recovered/Not Resolved]
  - Hepatocellular carcinoma [Not Recovered/Not Resolved]
  - Ascites [Unknown]
  - Product use issue [Unknown]
  - Respiratory failure [Fatal]
  - Circulatory collapse [Fatal]
